FAERS Safety Report 13349481 (Version 1)
Quarter: 2017Q1

REPORT INFORMATION
  Report Type: Spontaneous
  Country: US (occurrence: US)
  Receive Date: 20170320
  Receipt Date: 20170320
  Transmission Date: 20170428
  Serious: No
  Sender: FDA-Public Use
  Company Number: US-009507513-1703USA008320

PATIENT
  Sex: Female

DRUGS (1)
  1. INTRON A [Suspect]
     Active Substance: INTERFERON ALFA-2B
     Indication: PRODUCT USED FOR UNKNOWN INDICATION
     Dosage: 0.2 ML, (1.2 MILLION UNITS) THREE TIMES PER WEEK
     Route: 058
     Dates: start: 20160727, end: 20170301

REACTIONS (2)
  - Alopecia [Unknown]
  - Thyroid disorder [Unknown]
